FAERS Safety Report 11584673 (Version 3)
Quarter: 2015Q4

REPORT INFORMATION
  Report Type: Spontaneous
  Country: JP (occurrence: JP)
  Receive Date: 20151001
  Receipt Date: 20151020
  Transmission Date: 20160304
  Serious: Yes (Death)
  Sender: FDA-Public Use
  Company Number: JP-ASTRAZENECA-2015SE93687

PATIENT
  Age: 26533 Day
  Sex: Female
  Weight: 52 kg

DRUGS (6)
  1. MUCODYNE [Suspect]
     Active Substance: CARBOCYSTEINE
     Indication: CHRONIC OBSTRUCTIVE PULMONARY DISEASE
     Route: 048
  2. MUCODYNE [Suspect]
     Active Substance: CARBOCYSTEINE
     Indication: CHRONIC OBSTRUCTIVE PULMONARY DISEASE
     Route: 048
  3. MUCODYNE [Suspect]
     Active Substance: CARBOCYSTEINE
     Indication: ASTHMA
     Route: 048
  4. MUCODYNE [Suspect]
     Active Substance: CARBOCYSTEINE
     Indication: ASTHMA
     Route: 048
  5. MUCOSOLVAN [Suspect]
     Active Substance: AMBROXOL HYDROCHLORIDE
     Indication: ASTHMA
     Route: 048
     Dates: start: 20140924, end: 20140925
  6. SYMBICORT [Suspect]
     Active Substance: BUDESONIDE\FORMOTEROL FUMARATE DIHYDRATE
     Indication: ASTHMA
     Dosage: 1 DF TWICE DAILY AS REQUIRED DOSE UP TO 6 INHALATIONS
     Route: 055
     Dates: start: 20150924, end: 20150925

REACTIONS (1)
  - Status asthmaticus [Fatal]

NARRATIVE: CASE EVENT DATE: 20150925
